FAERS Safety Report 8055063-1 (Version None)
Quarter: 2011Q4

REPORT INFORMATION
  Report Type: 
  Country: None (occurrence: None)
  Receive Date: 20111216
  Receipt Date: 20110610
  Transmission Date: 20120403
  Serious: Yes (Other)
  Sender: FDA-Public Use
  Company Number: 278979USA

PATIENT
  Age: 24 Year
  Sex: Female
  Weight: 53.5244 kg

DRUGS (4)
  1. CLONAZEPAM [Concomitant]
  2. MISOPROSTOL [Concomitant]
  3. PARAGARD T 380A [Suspect]
     Indication: CONTRACEPTION
     Dosage: I.U.
     Dates: start: 20110105, end: 20110420
  4. SERTRALINE HYDROCHLORIDE [Concomitant]

REACTIONS (3)
  - PAIN [None]
  - DEVICE DISLOCATION [None]
  - HAEMORRHAGE [None]
